FAERS Safety Report 17958461 (Version 1)
Quarter: 2020Q2

REPORT INFORMATION
  Report Type: Spontaneous
  Country: US (occurrence: US)
  Receive Date: 20200629
  Receipt Date: 20200629
  Transmission Date: 20200714
  Serious: Yes (Death, Hospitalization, Other)
  Sender: FDA-Public Use
  Company Number: US-HIKMA PHARMACEUTICALS USA INC.-US-H14001-20-03030

PATIENT
  Age: 35 Year
  Sex: Female

DRUGS (1)
  1. METHAMPHETAMINE HYDROCHLORIDE. [Suspect]
     Active Substance: METHAMPHETAMINE HYDROCHLORIDE
     Indication: PRODUCT USED FOR UNKNOWN INDICATION
     Route: 065

REACTIONS (6)
  - Cardiac arrest [Unknown]
  - Hypoxia [Unknown]
  - Brain injury [Fatal]
  - Maternal exposure during pregnancy [Recovered/Resolved]
  - Cardiomyopathy [Unknown]
  - Pulmonary oedema [Unknown]
